FAERS Safety Report 21686119 (Version 3)
Quarter: 2023Q1

REPORT INFORMATION
  Report Type: Report from Study
  Country: US (occurrence: US)
  Receive Date: 20221206
  Receipt Date: 20230208
  Transmission Date: 20230418
  Serious: Yes (Hospitalization)
  Sender: FDA-Public Use
  Company Number: US-ABBVIE-4222553

PATIENT
  Sex: Female

DRUGS (2)
  1. IMBRUVICA [Suspect]
     Active Substance: IBRUTINIB
     Indication: Chronic lymphocytic leukaemia (in remission)
     Route: 048
     Dates: start: 20221115
  2. IMBRUVICA [Suspect]
     Active Substance: IBRUTINIB
     Indication: Chronic lymphocytic leukaemia (in remission)
     Dosage: LAST ADMIN DATE- 2022
     Route: 048
     Dates: start: 202207

REACTIONS (7)
  - Cellulitis [Recovering/Resolving]
  - Contusion [Not Recovered/Not Resolved]
  - Dementia [Recovering/Resolving]
  - Poor quality sleep [Not Recovered/Not Resolved]
  - White blood cell count decreased [Unknown]
  - Lymphoedema [Not Recovered/Not Resolved]
  - Haemorrhagic diathesis [Not Recovered/Not Resolved]
